FAERS Safety Report 4611066-8 (Version None)
Quarter: 2005Q1

REPORT INFORMATION
  Report Type: 
  Country: None (occurrence: None)
  Receive Date: 20050314
  Receipt Date: 20050314
  Transmission Date: 20050727
  Serious: No
  Sender: FDA-Public Use
  Company Number: None

PATIENT
  Age: 75 Year
  Sex: Female

DRUGS (14)
  1. PACLITAXEL [Suspect]
     Indication: LUNG NEOPLASM MALIGNANT
     Dosage: 1,427MG CYCLE Q 3 WEEKS TOTAL (5 CYCLES)
     Dates: start: 20040227
  2. PACLITAXEL [Suspect]
     Indication: LUNG NEOPLASM MALIGNANT
     Dosage: 1,427MG CYCLE Q 3 WEEKS TOTAL (5 CYCLES)
     Dates: start: 20041129
  3. PACLITAXEL [Suspect]
     Indication: LUNG NEOPLASM MALIGNANT
     Dosage: 1,427MG CYCLE Q 3 WEEKS TOTAL (5 CYCLES)
     Dates: start: 20041220
  4. PACLITAXEL [Suspect]
     Indication: LUNG NEOPLASM MALIGNANT
     Dosage: 1,427MG CYCLE Q 3 WEEKS TOTAL (5 CYCLES)
     Dates: start: 20050107
  5. PACLITAXEL [Suspect]
     Indication: LUNG NEOPLASM MALIGNANT
     Dosage: 1,427MG CYCLE Q 3 WEEKS TOTAL (5 CYCLES)
     Dates: start: 20050228
  6. GEMCITABINE [Suspect]
     Indication: LUNG NEOPLASM MALIGNANT
     Dosage: 13,900 MG TOTAL (5 CYCLES)
     Dates: start: 20040206
  7. GEMCITABINE [Suspect]
     Indication: LUNG NEOPLASM MALIGNANT
     Dosage: 13,900 MG TOTAL (5 CYCLES)
     Dates: start: 20041129
  8. GEMCITABINE [Suspect]
     Indication: LUNG NEOPLASM MALIGNANT
     Dosage: 13,900 MG TOTAL (5 CYCLES)
     Dates: start: 20041220
  9. GEMCITABINE [Suspect]
     Indication: LUNG NEOPLASM MALIGNANT
     Dosage: 13,900 MG TOTAL (5 CYCLES)
     Dates: start: 20041227
  10. GEMCITABINE [Suspect]
     Indication: LUNG NEOPLASM MALIGNANT
     Dosage: 13,900 MG TOTAL (5 CYCLES)
     Dates: start: 20050117
  11. GEMCITABINE [Suspect]
     Indication: LUNG NEOPLASM MALIGNANT
     Dosage: 13,900 MG TOTAL (5 CYCLES)
     Dates: start: 20050124
  12. GEMCITABINE [Suspect]
     Indication: LUNG NEOPLASM MALIGNANT
     Dosage: 13,900 MG TOTAL (5 CYCLES)
     Dates: start: 20050207
  13. GEMCITABINE [Suspect]
     Indication: LUNG NEOPLASM MALIGNANT
     Dosage: 13,900 MG TOTAL (5 CYCLES)
     Dates: start: 20050214
  14. GEMCITABINE [Suspect]
     Indication: LUNG NEOPLASM MALIGNANT
     Dosage: 13,900 MG TOTAL (5 CYCLES)
     Dates: start: 20050228

REACTIONS (5)
  - CONFUSIONAL STATE [None]
  - DIARRHOEA [None]
  - MENTAL STATUS CHANGES [None]
  - METABOLIC DISORDER [None]
  - RESPIRATORY RATE INCREASED [None]
